FAERS Safety Report 10211190 (Version 1)
Quarter: 2014Q2

REPORT INFORMATION
  Report Type: Spontaneous
  Country: US (occurrence: US)
  Receive Date: 20140602
  Receipt Date: 20140602
  Transmission Date: 20141212
  Serious: Yes (Other)
  Sender: FDA-Public Use
  Company Number: US-TEVA-485395USA

PATIENT
  Age: 53 Year
  Sex: Female
  Weight: 68.1 kg

DRUGS (9)
  1. COPAXONE [Suspect]
     Indication: MULTIPLE SCLEROSIS
     Dosage: 20 MILLIGRAM DAILY;
  2. LISINOPRIL [Concomitant]
  3. PROVIGIL [Concomitant]
  4. REMERON [Concomitant]
  5. TOFRANIL [Concomitant]
  6. TRAZODONE [Concomitant]
  7. WELLBUTRIN [Concomitant]
  8. XANAX [Concomitant]
  9. ZOFRAN [Concomitant]

REACTIONS (1)
  - Convulsion [Recovered/Resolved]
